FAERS Safety Report 25349928 (Version 1)
Quarter: 2025Q2

REPORT INFORMATION
  Report Type: Spontaneous
  Country: NO (occurrence: NO)
  Receive Date: 20250523
  Receipt Date: 20250523
  Transmission Date: 20250717
  Serious: Yes (Other)
  Sender: TEVA
  Company Number: None

PATIENT
  Age: 54 Year
  Sex: Male
  Weight: 67 kg

DRUGS (1)
  1. FINASTERIDE [Suspect]
     Active Substance: FINASTERIDE
     Indication: Prostatic disorder
     Dosage: 1 TABLET IN THE MORNING; FINASTERIDE ACTAVIS
     Route: 048
     Dates: start: 20250407, end: 20250506

REACTIONS (6)
  - Suicidal ideation [Unknown]
  - Anxiety [Unknown]
  - Gastrointestinal disorder [Unknown]
  - Depression [Unknown]
  - Lactose intolerance [Unknown]
  - Mood swings [Unknown]

NARRATIVE: CASE EVENT DATE: 20250401
